FAERS Safety Report 15578390 (Version 1)
Quarter: 2018Q4

REPORT INFORMATION
  Report Type: Spontaneous
  Country: US (occurrence: US)
  Receive Date: 20181029
  Receipt Date: 20181029
  Transmission Date: 20190205
  Serious: Yes (Hospitalization)
  Sender: FDA-Public Use
  Company Number: None

PATIENT
  Age: 42 Year
  Sex: Female
  Weight: 137.9 kg

DRUGS (3)
  1. TAXOL [Suspect]
     Active Substance: PACLITAXEL
     Dates: end: 20181002
  2. DOXORUBICIN HYDROCHLORIDE. [Suspect]
     Active Substance: DOXORUBICIN HYDROCHLORIDE
     Dates: end: 20180703
  3. CYCLOPHOSPHAMIDE. [Suspect]
     Active Substance: CYCLOPHOSPHAMIDE
     Dates: end: 20180703

REACTIONS (16)
  - Neuropathy peripheral [None]
  - Erythema [None]
  - Arthralgia [None]
  - Dyspnoea exertional [None]
  - Cellulitis [None]
  - Myalgia [None]
  - Chest discomfort [None]
  - Asthenia [None]
  - Lymphoedema [None]
  - Blister [None]
  - Oedema peripheral [None]
  - Fatigue [None]
  - Urinary tract infection [None]
  - Fall [None]
  - Back pain [None]
  - Toxicity to various agents [None]

NARRATIVE: CASE EVENT DATE: 20181016
